FAERS Safety Report 10160557 (Version 5)
Quarter: 2014Q2

REPORT INFORMATION
  Report Type: Report from Study
  Country: US (occurrence: US)
  Receive Date: 20140508
  Receipt Date: 20140527
  Transmission Date: 20141212
  Serious: Yes (Hospitalization, Other)
  Sender: FDA-Public Use
  Company Number: PHHO2014US004066

PATIENT
  Age: 19 Year
  Sex: Female
  Weight: 57.1 kg

DRUGS (7)
  1. AFINITOR [Suspect]
     Indication: NEUROFIBROMATOSIS
     Dosage: 10 MG, QD
     Route: 048
     Dates: start: 20131122, end: 20140317
  2. AFINITOR [Suspect]
     Dosage: 10 MG, QD
     Route: 048
     Dates: start: 20140319, end: 20140323
  3. AFINITOR [Suspect]
     Dosage: 5 MG, QD
     Route: 048
     Dates: start: 20140401, end: 20140427
  4. AFINITOR [Suspect]
     Dosage: 5 MG, QD
     Route: 048
     Dates: start: 20140430, end: 20140508
  5. AVASTIN [Suspect]
     Indication: NEUROFIBROMATOSIS
     Dosage: 570 MG, QW2
     Route: 042
     Dates: start: 20131122, end: 20140323
  6. AVASTIN [Suspect]
     Dosage: 560 MG, QW2
     Route: 042
     Dates: start: 20140328
  7. AVASTIN [Suspect]
     Dosage: 570 MG, QW
     Route: 042
     Dates: start: 20140425

REACTIONS (9)
  - Mucosal inflammation [Recovered/Resolved]
  - Headache [Recovered/Resolved]
  - Abdominal pain [Recovering/Resolving]
  - Haematemesis [Recovered/Resolved]
  - Hypertension [Unknown]
  - Dehydration [Recovered/Resolved]
  - Infection [Recovered/Resolved]
  - Constipation [Recovered/Resolved]
  - Upper gastrointestinal haemorrhage [Recovered/Resolved]
